FAERS Safety Report 19498157 (Version 1)
Quarter: 2021Q3

REPORT INFORMATION
  Report Type: Spontaneous
  Country: FR (occurrence: FR)
  Receive Date: 20210706
  Receipt Date: 20210706
  Transmission Date: 20211014
  Serious: Yes (Hospitalization)
  Sender: FDA-Public Use
  Company Number: FR-TEVA-2021-FR-1929806

PATIENT
  Age: 49 Year
  Sex: Female
  Weight: 77 kg

DRUGS (3)
  1. AMOXICILLINE [Suspect]
     Active Substance: AMOXICILLIN
     Indication: ANTIBIOTIC PROPHYLAXIS
     Dosage: 2GM
     Route: 048
     Dates: start: 20210603, end: 20210609
  2. WELLVONE 750 MG/5 ML, SUSPENSION BUVABLE [Suspect]
     Active Substance: ATOVAQUONE
     Indication: PARASITIC INFECTION PROPHYLAXIS
     Dosage: 750MG
     Route: 048
     Dates: start: 20210603, end: 20210607
  3. LAROXYL 40 MG/ML, SOLUTION BUVABLE [Suspect]
     Active Substance: AMITRIPTYLINE HYDROCHLORIDE
     Indication: GAIT DISTURBANCE
     Dosage: 7MG
     Route: 048
     Dates: start: 20210601, end: 20210617

REACTIONS (4)
  - Eosinophilia [Recovering/Resolving]
  - Rash [Recovered/Resolved]
  - Pruritus [Recovering/Resolving]
  - Mixed liver injury [Recovering/Resolving]

NARRATIVE: CASE EVENT DATE: 202106
